APPROVED DRUG PRODUCT: PIOGLITAZONE HYDROCHLORIDE AND METFORMIN HYDROCHLORIDE
Active Ingredient: METFORMIN HYDROCHLORIDE; PIOGLITAZONE HYDROCHLORIDE
Strength: 500MG;EQ 15MG BASE
Dosage Form/Route: TABLET;ORAL
Application: A091273 | Product #001
Applicant: CHARTWELL RX SCIENCES LLC
Approved: Apr 16, 2013 | RLD: No | RS: No | Type: DISCN